FAERS Safety Report 6181677-X (Version None)
Quarter: 2009Q2

REPORT INFORMATION
  Report Type: 
  Country: None (occurrence: None)
  Receive Date: 20090506
  Receipt Date: 20080708
  Transmission Date: 20091009
  Serious: No
  Sender: FDA-Public Use
  Company Number: A0736733A

PATIENT
  Sex: Female

DRUGS (1)
  1. TIMENTIN [Suspect]
     Indication: URINARY TRACT INFECTION
     Dosage: 3.1G THREE TIMES PER DAY
     Route: 042

REACTIONS (1)
  - SECRETION DISCHARGE [None]
